FAERS Safety Report 5780465-3 (Version None)
Quarter: 2008Q2

REPORT INFORMATION
  Report Type: 
  Country: None (occurrence: None)
  Receive Date: 20080620
  Receipt Date: 20080616
  Transmission Date: 20081010
  Serious: Yes (Hospitalization)
  Sender: FDA-Public Use
  Company Number: PHBS2008ES04733

PATIENT
  Age: 75 Year
  Sex: Female

DRUGS (1)
  1. ZOMETA [Suspect]
     Indication: MULTIPLE MYELOMA
     Dosage: 4 MG, EVERY 28 DAYS
     Route: 042
     Dates: start: 20041201, end: 20060201

REACTIONS (16)
  - ABSCESS MANAGEMENT [None]
  - BONE DISORDER [None]
  - CELLULITIS [None]
  - EXOSTOSIS [None]
  - FISTULA [None]
  - GENERAL PHYSICAL HEALTH DETERIORATION [None]
  - HEADACHE [None]
  - MASTICATION DISORDER [None]
  - MASTOID ABSCESS [None]
  - MUCOSAL INFLAMMATION [None]
  - ORAL DISORDER [None]
  - ORAL SURGERY [None]
  - OSTEONECROSIS [None]
  - PURULENT DISCHARGE [None]
  - PYREXIA [None]
  - TOOTH EXTRACTION [None]
